FAERS Safety Report 21764995 (Version 3)
Quarter: 2025Q2

REPORT INFORMATION
  Report Type: Report from Study
  Country: ES (occurrence: ES)
  Receive Date: 20221222
  Receipt Date: 20250527
  Transmission Date: 20250716
  Serious: Yes (Other)
  Sender: AUROBINDO
  Company Number: ES-MLMSERVICE-20221202-3963775-1

PATIENT
  Age: 42 Year
  Sex: Female

DRUGS (1)
  1. LEVETIRACETAM [Suspect]
     Active Substance: LEVETIRACETAM
     Indication: Tuberous sclerosis complex
     Route: 065

REACTIONS (7)
  - Substance-induced psychotic disorder [Recovering/Resolving]
  - Psychomotor hyperactivity [Recovering/Resolving]
  - Ideas of reference [Recovering/Resolving]
  - Hallucination, auditory [Recovering/Resolving]
  - Depressed mood [Recovering/Resolving]
  - Irritability [Recovering/Resolving]
  - Anxiety [Recovering/Resolving]
